FAERS Safety Report 20650128 (Version 3)
Quarter: 2022Q2

REPORT INFORMATION
  Report Type: Spontaneous
  Country: US (occurrence: US)
  Receive Date: 20220329
  Receipt Date: 20220624
  Transmission Date: 20220720
  Serious: No
  Sender: FDA-Public Use
  Company Number: US-AVEO ONCOLOGY-2022-AVEO-US000067

PATIENT

DRUGS (16)
  1. FOTIVDA [Suspect]
     Active Substance: TIVOZANIB HYDROCHLORIDE
     Indication: Renal cell carcinoma
     Dosage: 1.34 MG, DAILY FOR 21 DAYS THEN 7 DAYS OFF
     Route: 048
     Dates: start: 20220211, end: 20220327
  2. ALBUTEROL SULFATE [Concomitant]
     Active Substance: ALBUTEROL SULFATE
  3. AMLODIPINE [Concomitant]
     Active Substance: AMLODIPINE BESYLATE
  4. ATORVASTATIN [Concomitant]
     Active Substance: ATORVASTATIN
  5. BECLOMETHASONE [Concomitant]
     Active Substance: BECLOMETHASONE
  6. CETIRIZINE [Concomitant]
     Active Substance: CETIRIZINE HYDROCHLORIDE
  7. CILOSTAZOL [Concomitant]
     Active Substance: CILOSTAZOL
  8. DIPHENHYDRAMINE [Concomitant]
     Active Substance: DIPHENHYDRAMINE
  9. GABAPENTIN [Concomitant]
     Active Substance: GABAPENTIN
  10. HYDROXYZINE [Concomitant]
     Active Substance: HYDROXYZINE HYDROCHLORIDE
  11. LISINOPRIL [Concomitant]
     Active Substance: LISINOPRIL
  12. ONDANSETRON [Concomitant]
     Active Substance: ONDANSETRON
  13. OXYCODONE [Concomitant]
     Active Substance: OXYCODONE
  14. PREDNISONE [Concomitant]
     Active Substance: PREDNISONE
  15. PREGABALIN [Concomitant]
     Active Substance: PREGABALIN
  16. TAMSULOSIN [Concomitant]
     Active Substance: TAMSULOSIN

REACTIONS (13)
  - Apnoea [Unknown]
  - Panic attack [Unknown]
  - Colitis [Unknown]
  - Constipation [Recovered/Resolved]
  - Bloody discharge [Unknown]
  - Stent placement [Unknown]
  - Pain [Unknown]
  - Tongue discomfort [Recovering/Resolving]
  - Burning sensation [Recovering/Resolving]
  - Blister [Recovering/Resolving]
  - Therapy interrupted [Unknown]
  - Off label use [Unknown]
  - Rectal ultrasound abnormal [Unknown]

NARRATIVE: CASE EVENT DATE: 20220327
